FAERS Safety Report 17072337 (Version 3)
Quarter: 2020Q2

REPORT INFORMATION
  Report Type: Report from Study
  Country: GB (occurrence: GB)
  Receive Date: 20191125
  Receipt Date: 20200403
  Transmission Date: 20200713
  Serious: Yes (Hospitalization)
  Sender: FDA-Public Use
  Company Number: GB-EMD SERONO-E2B_90072734

PATIENT
  Age: 29 Year
  Sex: Male
  Weight: 70 kg

DRUGS (5)
  1. ALLOPURINOL. [Concomitant]
     Active Substance: ALLOPURINOL
     Indication: PROPHYLAXIS
     Route: 048
     Dates: start: 20191113
  2. CHLORPHENAMINE [Concomitant]
     Active Substance: CHLORPHENIRAMINE MALEATE
     Indication: PROPHYLAXIS
     Route: 042
     Dates: start: 20191113, end: 20191113
  3. PARACETAMOL [Concomitant]
     Active Substance: ACETAMINOPHEN
     Indication: PROPHYLAXIS
     Route: 048
     Dates: start: 20191113, end: 20191113
  4. MSB0010718C [Suspect]
     Active Substance: AVELUMAB
     Indication: HODGKIN^S DISEASE
     Route: 042
     Dates: start: 20191113, end: 20191113
  5. LIDOCAINE. [Concomitant]
     Active Substance: LIDOCAINE
     Indication: BIOPSY
     Dosage: SINGLE ONCE PRIOR TO BIOPSY
     Route: 058
     Dates: start: 20191113, end: 20191113

REACTIONS (1)
  - Tumour flare [Recovered/Resolved]

NARRATIVE: CASE EVENT DATE: 20191113
